FAERS Safety Report 8600636-8 (Version None)
Quarter: 2012Q3

REPORT INFORMATION
  Report Type: 
  Country: None (occurrence: None)
  Receive Date: 20120817
  Receipt Date: 20120814
  Transmission Date: 20120928
  Serious: No
  Sender: FDA-Public Use
  Company Number: US-PFIZER INC-2012169680

PATIENT
  Age: 83 Year
  Sex: Male
  Weight: 62.132 kg

DRUGS (5)
  1. TRAMADOL [Concomitant]
     Dosage: UNK
  2. ASPIRIN [Concomitant]
     Dosage: UNK
  3. LATANOPROST [Suspect]
     Indication: GLAUCOMA
     Dosage: UNK
     Route: 047
  4. ZOCOR [Concomitant]
     Dosage: UNK
  5. METOPROLOL [Concomitant]
     Dosage: UNK

REACTIONS (3)
  - EYE IRRITATION [None]
  - INCORRECT DOSE ADMINISTERED [None]
  - PRODUCT DROPPER ISSUE [None]
